FAERS Safety Report 16925925 (Version 3)
Quarter: 2020Q4

REPORT INFORMATION
  Report Type: Report from Study
  Country: BR (occurrence: BR)
  Receive Date: 20191016
  Receipt Date: 20201123
  Transmission Date: 20210113
  Serious: Yes (Other)
  Sender: FDA-Public Use
  Company Number: BR-UCBSA-2019042868

PATIENT
  Age: 0 Year
  Sex: Female

DRUGS (1)
  1. CERTOLIZUMAB PEGOL CD [Suspect]
     Active Substance: CERTOLIZUMAB PEGOL
     Indication: CROHN^S DISEASE
     Dosage: 400 MILLIGRAM, EV 4 WEEKS
     Route: 064
     Dates: start: 201807, end: 2019

REACTIONS (2)
  - Maternal exposure before pregnancy [Unknown]
  - Premature baby [Unknown]

NARRATIVE: CASE EVENT DATE: 201807
